FAERS Safety Report 9766276 (Version 2)
Quarter: 2014Q1

REPORT INFORMATION
  Report Type: Spontaneous
  Country: US (occurrence: US)
  Receive Date: 20131217
  Receipt Date: 20140205
  Transmission Date: 20141002
  Serious: Yes (Other)
  Sender: FDA-Public Use
  Company Number: US-PFIZER INC-2013356624

PATIENT
  Age: 23 Year
  Sex: Female
  Weight: 82.99 kg

DRUGS (18)
  1. MYCOPHENOLATE MOFETIL [Suspect]
     Indication: RENAL TRANSPLANT
     Dosage: 500 MG, 2X/DAY
     Route: 048
     Dates: start: 20120521, end: 20131205
  2. MYCOPHENOLATE MOFETIL [Suspect]
     Indication: IMMUNOSUPPRESSION
  3. CELLCEPT [Suspect]
     Dosage: 500 MG, BID
  4. GENGRAF [Concomitant]
     Indication: RENAL TRANSPLANT
     Dosage: (100 MG CAP AND 25 MG CAP) 125 MG, 2X/DAY
     Route: 048
     Dates: start: 20120406
  5. LABETALOL [Concomitant]
     Indication: HYPERTENSION
     Dosage: 100 MG, 2X/DAY
     Route: 048
  6. NORVASC [Concomitant]
     Indication: HYPERTENSION
     Dosage: (5 MG TAB) 6 MG 1X/DAY - STOP DATE ^12/7113^
     Route: 048
  7. NORVASC [Concomitant]
     Dosage: (5 MG TAB) 1X/DAY
  8. ASPIRIN [Concomitant]
     Indication: CARDIOVASCULAR EVENT PROPHYLAXIS
     Dosage: 81 MG, 1X/DAY
     Route: 048
  9. VITAMIN D [Concomitant]
     Dosage: 1000 MG, 1X/DAY
     Route: 048
  10. VITAMIN D3 [Concomitant]
     Dosage: 1000 IU, DAILY
     Route: 048
     Dates: start: 20131205
  11. IMURAN [Concomitant]
     Dosage: 50 MG, 3X/DAY
     Route: 048
     Dates: start: 20131205
  12. IMURAN [Concomitant]
     Dosage: 50 MG, 3X/DAY
  13. LISINOPRIL [Concomitant]
     Dosage: 5 MG, 1X/DAY
     Route: 048
  14. PREDNISONE [Concomitant]
     Indication: IMMUNOSUPPRESSION
     Dosage: (5MG TAB; 1.5 TAB) 7.5 MG, 1X/DAY
     Route: 048
  15. PRAVACHOL [Concomitant]
     Indication: DYSLIPIDAEMIA
     Dosage: 20 MG, 1X/DAY
     Route: 048
     Dates: end: 20131205
  16. PRAVACHOL [Concomitant]
     Dosage: 10 MG, 1X/DAY
     Route: 048
  17. SULFAMETHOXAZOLE W/TRIMETHOPRIM [Concomitant]
     Dosage: 400 MG - 80 MG DAILY
     Route: 048
  18. PROGRAF [Concomitant]
     Indication: IMMUNOSUPPRESSION
     Dosage: (1 MG CAP) 4 MG (=4 CAPS), EVERY 12 HOURS

REACTIONS (1)
  - Abortion spontaneous [Recovered/Resolved]
